FAERS Safety Report 14171794 (Version 1)
Quarter: 2017Q4

REPORT INFORMATION
  Report Type: Spontaneous
  Country: US (occurrence: US)
  Receive Date: 20171108
  Receipt Date: 20171108
  Transmission Date: 20180321
  Serious: No
  Sender: FDA-Public Use
  Company Number: US-SA-2017SA127102

PATIENT
  Sex: Male

DRUGS (4)
  1. SOLOSTAR [Concomitant]
     Active Substance: DEVICE
     Route: 065
  2. LANTUS SOLOSTAR [Concomitant]
     Active Substance: INSULIN GLARGINE
     Dosage: VIAL AND PEN?DOSE;16 OR 18
     Route: 065
  3. SOLOSTAR [Concomitant]
     Active Substance: DEVICE
     Indication: TYPE 1 DIABETES MELLITUS
     Route: 065
     Dates: start: 2016
  4. TOUJEO [Suspect]
     Active Substance: INSULIN GLARGINE
     Indication: TYPE 1 DIABETES MELLITUS
     Dosage: DOSE:22 UNIT(S)
     Route: 051
     Dates: start: 2016

REACTIONS (2)
  - Product use issue [Unknown]
  - Product storage error [Unknown]
